FAERS Safety Report 11823152 (Version 4)
Quarter: 2016Q1

REPORT INFORMATION
  Report Type: Report from Study
  Country: US (occurrence: US)
  Receive Date: 20151210
  Receipt Date: 20160318
  Transmission Date: 20160525
  Serious: Yes (Death, Hospitalization, Other)
  Sender: FDA-Public Use
  Company Number: US-ACTELION-A-US2015-128353

PATIENT
  Age: 64 Year
  Sex: Male

DRUGS (9)
  1. POTASSIUM [Suspect]
     Active Substance: POTASSIUM
     Indication: PRODUCT USED FOR UNKNOWN INDICATION
     Dosage: 60 MEQ, QD
     Route: 065
     Dates: end: 20151201
  2. TRACLEER [Suspect]
     Active Substance: BOSENTAN
     Indication: PULMONARY HYPERTENSION
     Dosage: 125 MG, BID
     Route: 048
     Dates: start: 200703
  3. TYVASO [Concomitant]
     Active Substance: TREPROSTINIL
     Dosage: 2 BREATHS 4 TIMES DAILY
     Dates: start: 20151118
  4. BUMETANIDE. [Concomitant]
     Active Substance: BUMETANIDE
     Dosage: 2 MG, UNK
  5. DILANTIN [Concomitant]
     Active Substance: PHENYTOIN
     Dosage: 400 MG, UNK
  6. TRACLEER [Suspect]
     Active Substance: BOSENTAN
     Dosage: 125 MG, QD
     Route: 048
  7. FUROSEMIDE. [Concomitant]
     Active Substance: FUROSEMIDE
  8. METOLAZONE. [Concomitant]
     Active Substance: METOLAZONE
  9. SPIRONOLACTONE. [Suspect]
     Active Substance: SPIRONOLACTONE
     Indication: PRODUCT USED FOR UNKNOWN INDICATION
     Dosage: 75 MG, QD
     Route: 065

REACTIONS (3)
  - Pulmonary hypertension [Fatal]
  - Hyperkalaemia [Recovering/Resolving]
  - Oedema peripheral [Not Recovered/Not Resolved]

NARRATIVE: CASE EVENT DATE: 20151129
